FAERS Safety Report 7599499-1 (Version None)
Quarter: 2011Q3

REPORT INFORMATION
  Report Type: 
  Country: None (occurrence: None)
  Receive Date: 20110711
  Receipt Date: 20110629
  Transmission Date: 20111222
  Serious: Yes (Hospitalization)
  Sender: FDA-Public Use
  Company Number: NL-BAYER-2011-056847

PATIENT
  Age: 47 Year
  Sex: Female

DRUGS (2)
  1. MIRENA [Suspect]
     Dosage: UNK
     Route: 015
     Dates: start: 20080101
  2. THYRAX [Concomitant]
     Indication: AUTOIMMUNE THYROIDITIS

REACTIONS (6)
  - DIPLOPIA [None]
  - PAPILLOEDEMA [None]
  - INTRACRANIAL PRESSURE INCREASED [None]
  - MONOPLEGIA [None]
  - VISION BLURRED [None]
  - BLINDNESS UNILATERAL [None]
